FAERS Safety Report 5684396-9 (Version None)
Quarter: 2008Q1

REPORT INFORMATION
  Report Type: 
  Country: None (occurrence: None)
  Receive Date: 20080327
  Receipt Date: 20080327
  Transmission Date: 20080703
  Serious: Yes (Hospitalization)
  Sender: FDA-Public Use
  Company Number: None

PATIENT
  Sex: Female
  Weight: 79 kg

DRUGS (4)
  1. CISPLATIN [Suspect]
     Dosage: 90 MG
  2. DOXORUBICIN HYDROCHLORIDE [Suspect]
     Dosage: 81.3 MG
  3. TAXOL [Suspect]
     Dosage: 289 MG
  4. NEULASTA [Suspect]
     Dosage: 6 MG

REACTIONS (5)
  - BETA HAEMOLYTIC STREPTOCOCCAL INFECTION [None]
  - INTESTINAL ISCHAEMIA [None]
  - RENAL FAILURE [None]
  - STREPTOCOCCAL INFECTION [None]
  - URINARY TRACT INFECTION [None]
